FAERS Safety Report 6389706-5 (Version None)
Quarter: 2009Q4

REPORT INFORMATION
  Report Type: 
  Country: None (occurrence: None)
  Receive Date: 20091002
  Receipt Date: 20091002
  Transmission Date: 20100525
  Serious: Yes (Other)
  Sender: FDA-Public Use
  Company Number: None

PATIENT
  Age: 29 Year
  Sex: Female

DRUGS (1)
  1. ENBREL [Suspect]
     Indication: PSORIASIS
     Dosage: 50 MG WEEKLY SQ
     Route: 058
     Dates: start: 20090830, end: 20090930

REACTIONS (2)
  - INJECTION SITE PRURITUS [None]
  - INJECTION SITE RASH [None]
